FAERS Safety Report 16708017 (Version 1)
Quarter: 2019Q3

REPORT INFORMATION
  Report Type: Spontaneous
  Country: US (occurrence: US)
  Receive Date: 20190815
  Receipt Date: 20190815
  Transmission Date: 20191004
  Serious: No
  Sender: FDA-Public Use
  Company Number: US-LEXICON PHARMACEUTICALS, INC-19-1606-00785

PATIENT
  Sex: Female

DRUGS (18)
  1. HYDROCHLOROTHIAZIDE. [Concomitant]
     Active Substance: HYDROCHLOROTHIAZIDE
  2. MAGNESIUM [Concomitant]
     Active Substance: MAGNESIUM
  3. BIOTIN [Concomitant]
     Active Substance: BIOTIN
  4. ALBUTEROL. [Concomitant]
     Active Substance: ALBUTEROL
  5. ONDANSETRON [Concomitant]
     Active Substance: ONDANSETRON
  6. NOVOLIN 70/30 [Concomitant]
     Active Substance: INSULIN HUMAN
  7. LOSARTAN. [Concomitant]
     Active Substance: LOSARTAN
  8. MECLIZINE [Concomitant]
     Active Substance: MECLIZINE HYDROCHLORIDE
  9. TELOTRISTAT ETHYL [Suspect]
     Active Substance: TELOTRISTAT ETHYL
     Route: 048
  10. DOXYCYCLINE. [Concomitant]
     Active Substance: DOXYCYCLINE
  11. LORATADINE. [Concomitant]
     Active Substance: LORATADINE
  12. TELOTRISTAT ETHYL [Suspect]
     Active Substance: TELOTRISTAT ETHYL
     Indication: CARCINOID SYNDROME
     Route: 048
     Dates: start: 20190709
  13. SERTRALINE [Concomitant]
     Active Substance: SERTRALINE HYDROCHLORIDE
  14. CINNAMON PLUS CHROMIUM [Concomitant]
  15. CLONAZEPAM. [Concomitant]
     Active Substance: CLONAZEPAM
  16. FLUTICASONE. [Concomitant]
     Active Substance: FLUTICASONE
  17. NAPROXEN. [Concomitant]
     Active Substance: NAPROXEN
  18. CREON [Concomitant]
     Active Substance: PANCRELIPASE AMYLASE\PANCRELIPASE LIPASE\PANCRELIPASE PROTEASE

REACTIONS (3)
  - Constipation [Not Recovered/Not Resolved]
  - Abdominal distension [Unknown]
  - Abdominal pain upper [Unknown]
